FAERS Safety Report 17945856 (Version 2)
Quarter: 2020Q4

REPORT INFORMATION
  Report Type: Report from Study
  Country: ES (occurrence: ES)
  Receive Date: 20200625
  Receipt Date: 20201217
  Transmission Date: 20210113
  Serious: Yes (Hospitalization)
  Sender: FDA-Public Use
  Company Number: ES-JNJFOC-20200629788

PATIENT
  Age: 55 Year
  Sex: Male

DRUGS (1)
  1. USTEKINUMAB [Suspect]
     Active Substance: USTEKINUMAB
     Indication: PSORIATIC ARTHROPATHY
     Route: 058
     Dates: start: 20180925

REACTIONS (1)
  - Postoperative wound infection [Recovering/Resolving]

NARRATIVE: CASE EVENT DATE: 20200609
